FAERS Safety Report 6030105-3 (Version None)
Quarter: 2009Q1

REPORT INFORMATION
  Report Type: 
  Country: None (occurrence: None)
  Receive Date: 20090107
  Receipt Date: 20080912
  Transmission Date: 20090719
  Serious: No
  Sender: FDA-Public Use
  Company Number: US-BAYER-200813757BCC

PATIENT
  Age: 67 Year
  Sex: Female
  Weight: 69 kg

DRUGS (11)
  1. ALEVE [Suspect]
     Indication: ARTHRALGIA
     Dosage: TOTAL DAILY DOSE: 440 MG  UNIT DOSE: 220 MG
     Route: 048
     Dates: start: 20080401, end: 20080412
  2. VITAMIN B [Concomitant]
  3. NIACIN [Concomitant]
  4. VITAMIN A [Concomitant]
  5. IRON [Concomitant]
  6. FLAX SEED OIL [Concomitant]
  7. LUTEIN [Concomitant]
  8. GLUCOSAMINE [Concomitant]
  9. ASCORBIC ACID [Concomitant]
  10. VITAMIN E [Concomitant]
  11. VITAMIN D [Concomitant]

REACTIONS (1)
  - DIARRHOEA [None]
